FAERS Safety Report 26129715 (Version 1)
Quarter: 2025Q4

REPORT INFORMATION
  Report Type: Spontaneous
  Country: US (occurrence: US)
  Receive Date: 20251208
  Receipt Date: 20251208
  Transmission Date: 20260118
  Serious: No
  Sender: SUNOVION
  Company Number: US-SMPA-2025SPA015210

PATIENT
  Age: 64 Year
  Sex: Male

DRUGS (2)
  1. GEMTESA [Suspect]
     Active Substance: VIBEGRON
     Indication: Product used for unknown indication
     Dosage: UNK
     Route: 048
  2. GEMTESA [Suspect]
     Active Substance: VIBEGRON
     Dosage: UNK
     Route: 048

REACTIONS (4)
  - Urinary retention [Unknown]
  - Asthenia [Unknown]
  - Blood testosterone decreased [Unknown]
  - Therapy interrupted [Unknown]

NARRATIVE: CASE EVENT DATE: 20250801
